FAERS Safety Report 15516981 (Version 1)
Quarter: 2018Q4

REPORT INFORMATION
  Report Type: Spontaneous
  Country: US (occurrence: US)
  Receive Date: 20181011
  Receipt Date: 20181011
  Transmission Date: 20190205
  Serious: No
  Sender: FDA-Public Use
  Company Number: None

PATIENT
  Age: 64 Year
  Sex: Female
  Weight: 122.4 kg

DRUGS (1)
  1. 5-FLUOROURACIL (5-FU) [Suspect]
     Active Substance: FLUOROURACIL
     Dates: end: 20180517

REACTIONS (7)
  - Dehydration [None]
  - Appendicectomy [None]
  - Acute kidney injury [None]
  - Respiratory failure [None]
  - Blood lactic acid increased [None]
  - Abdominal hernia [None]
  - Septic shock [None]

NARRATIVE: CASE EVENT DATE: 20180730
